FAERS Safety Report 9452560 (Version 7)
Quarter: 2014Q2

REPORT INFORMATION
  Report Type: Report from Study
  Country: CA (occurrence: CA)
  Receive Date: 20130812
  Receipt Date: 20140617
  Transmission Date: 20141212
  Serious: Yes (Hospitalization, Other)
  Sender: FDA-Public Use
  Company Number: CA-ROCHE-800830

PATIENT
  Age: 76 Year
  Sex: Female
  Weight: 99.8 kg

DRUGS (9)
  1. RITUXAN [Suspect]
     Indication: RHEUMATOID ARTHRITIS
     Dosage: LAST DOSE OF RITUXIMAB BEFORE THE EVENTS ABDOMINAL HERNIA AND WEIGHT GAIN: 26/FEB/2013?LAST DOSE OF
     Route: 042
  2. AVAPRO [Concomitant]
  3. SYNTHROID [Concomitant]
  4. ASPIRIN [Concomitant]
     Dosage: DRUG REPORTED: SMALL ASPIRIN
     Route: 065
  5. HYDROCHLOROTHIAZIDE [Concomitant]
  6. DIDROCAL [Concomitant]
  7. PREDNISONE [Concomitant]
  8. COUMADIN [Concomitant]
  9. AMLODIPINE [Concomitant]

REACTIONS (9)
  - Oxygen saturation decreased [Not Recovered/Not Resolved]
  - Tachycardia [Recovered/Resolved]
  - Enteritis infectious [Not Recovered/Not Resolved]
  - Abdominal hernia [Not Recovered/Not Resolved]
  - Large intestine benign neoplasm [Unknown]
  - Benign ovarian tumour [Unknown]
  - Rheumatoid arthritis [Not Recovered/Not Resolved]
  - Weight increased [Not Recovered/Not Resolved]
  - Nasopharyngitis [Not Recovered/Not Resolved]
